FAERS Safety Report 18245566 (Version 1)
Quarter: 2020Q3

REPORT INFORMATION
  Report Type: Spontaneous
  Country: IT (occurrence: IT)
  Receive Date: 20200909
  Receipt Date: 20200909
  Transmission Date: 20201103
  Serious: Yes (Hospitalization)
  Sender: FDA-Public Use
  Company Number: IT-009507513-2009ITA001486

PATIENT
  Age: 91 Year
  Sex: Female

DRUGS (2)
  1. MIRTAZAPINE. [Suspect]
     Active Substance: MIRTAZAPINE
     Dosage: 1 DOSAGE FORM, TOTAL, MEDICATION ERROR
     Route: 048
     Dates: start: 20200801, end: 20200801
  2. TRITTICO [Suspect]
     Active Substance: TRAZODONE HYDROCHLORIDE
     Dosage: 1 DOSAGE FORM, TOTAL, MEDICATION ERROR
     Route: 048
     Dates: start: 20200801, end: 20200801

REACTIONS (2)
  - Medication error [Recovering/Resolving]
  - Sopor [Recovering/Resolving]

NARRATIVE: CASE EVENT DATE: 20200801
